FAERS Safety Report 25764117 (Version 1)
Quarter: 2025Q3

REPORT INFORMATION
  Report Type: Spontaneous
  Country: US (occurrence: US)
  Receive Date: 20250905
  Receipt Date: 20250905
  Transmission Date: 20251021
  Serious: No
  Sender: ELI LILLY AND COMPANY
  Company Number: US-ELI_LILLY_AND_COMPANY-US202508027215

PATIENT
  Age: 43 Year
  Sex: Female

DRUGS (1)
  1. ZEPBOUND [Suspect]
     Active Substance: TIRZEPATIDE
     Indication: Product used for unknown indication
     Route: 065

REACTIONS (7)
  - Sensitive skin [Recovered/Resolved]
  - Pain of skin [Recovered/Resolved]
  - Wrong technique in product usage process [Unknown]
  - Hypophagia [Unknown]
  - Presyncope [Unknown]
  - Decreased appetite [Unknown]
  - Hypoglycaemia [Unknown]
